FAERS Safety Report 8473089-0 (Version None)
Quarter: 2012Q2

REPORT INFORMATION
  Report Type: 
  Country: None (occurrence: None)
  Receive Date: 20120627
  Receipt Date: 20120618
  Transmission Date: 20120825
  Serious: Yes (Other)
  Sender: FDA-Public Use
  Company Number: AU-ROCHE-1061513

PATIENT
  Sex: Female

DRUGS (2)
  1. ACTEMRA [Suspect]
     Indication: RHEUMATOID ARTHRITIS
  2. ACTEMRA [Suspect]
     Dates: start: 20120521

REACTIONS (7)
  - MUSCULOSKELETAL PAIN [None]
  - CONTUSION [None]
  - MALAISE [None]
  - WOUND [None]
  - MUSCLE RUPTURE [None]
  - TENDON RUPTURE [None]
  - OEDEMA PERIPHERAL [None]
